FAERS Safety Report 7162908-6 (Version None)
Quarter: 2010Q4

REPORT INFORMATION
  Report Type: 
  Country: None (occurrence: None)
  Receive Date: 20101215
  Receipt Date: 20100121
  Transmission Date: 20110411
  Serious: Yes (Other)
  Sender: FDA-Public Use
  Company Number: US-PFIZER INC-2010010400

PATIENT
  Sex: Female
  Weight: 79.365 kg

DRUGS (9)
  1. LYRICA [Suspect]
     Indication: NEUROPATHY PERIPHERAL
     Dosage: 75 MG, 2X/DAY
     Route: 048
     Dates: start: 20090801
  2. GABAPENTIN [Suspect]
     Indication: NEUROPATHY PERIPHERAL
     Dosage: 300 MG, 1X/DAY
     Route: 048
     Dates: end: 20090801
  3. METOPROLOL [Concomitant]
     Indication: HYPERTENSION
     Dosage: 200MG
  4. ATACAND [Concomitant]
     Indication: HYPERTENSION
     Dosage: 2 MG, UNK
  5. INDAPAMIDE [Concomitant]
     Dosage: 2.5MG
  6. GLUCOVANCE [Concomitant]
     Indication: DIABETES MELLITUS
     Dosage: 1.25/250MG
  7. ESTRADIOL [Concomitant]
     Dosage: 1MG
  8. ASPIRIN [Concomitant]
     Dosage: 81 MG, UNK
  9. CALCIUM WITH VITAMIN D [Concomitant]
     Dosage: UNK

REACTIONS (4)
  - ALOPECIA [None]
  - DISLOCATION OF VERTEBRA [None]
  - DRUG INEFFECTIVE [None]
  - SPINAL FRACTURE [None]
